FAERS Safety Report 16386836 (Version 2)
Quarter: 2020Q4

REPORT INFORMATION
  Report Type: Spontaneous
  Country: JP (occurrence: JP)
  Receive Date: 20190604
  Receipt Date: 20201009
  Transmission Date: 20210113
  Serious: Yes (Other)
  Sender: FDA-Public Use
  Company Number: JP-BRISTOL-MYERS SQUIBB COMPANY-BMS-2019-052051

PATIENT

DRUGS (2)
  1. OPDIVO [Suspect]
     Active Substance: NIVOLUMAB
     Indication: RENAL CELL CARCINOMA
     Dosage: 240 MILLIGRAM
     Route: 041
  2. YERVOY [Suspect]
     Active Substance: IPILIMUMAB
     Indication: RENAL CELL CARCINOMA
     Dosage: 1 MILLIGRAM/KILOGRAM
     Route: 041
     Dates: start: 201902

REACTIONS (1)
  - Skin disorder [Recovered/Resolved]
